FAERS Safety Report 20543754 (Version 1)
Quarter: 2022Q1

REPORT INFORMATION
  Report Type: Spontaneous
  Country: FR (occurrence: FR)
  Receive Date: 20220303
  Receipt Date: 20220303
  Transmission Date: 20220424
  Serious: Yes (Life-Threatening)
  Sender: FDA-Public Use
  Company Number: FR-AFSSAPS-AN20220518

PATIENT
  Age: 64 Year
  Sex: Female

DRUGS (3)
  1. DESLORATADINE [Suspect]
     Active Substance: DESLORATADINE
     Indication: Angioedema
     Dosage: 5 MILLIGRAM, DAILY
     Route: 048
     Dates: start: 2017
  2. OMALIZUMAB [Suspect]
     Active Substance: OMALIZUMAB
     Indication: Angioedema
     Dosage: 300 MILLIGRAM, 1DOSE/15DAYS
     Route: 058
     Dates: start: 2017, end: 202201
  3. LEVOTHYROXINE [Suspect]
     Active Substance: LEVOTHYROXINE
     Indication: Hypothyroidism
     Dosage: 62.5 MICROGRAM, DAILY
     Route: 048
     Dates: start: 2015

REACTIONS (1)
  - Cerebrovascular accident [Recovering/Resolving]

NARRATIVE: CASE EVENT DATE: 20220131
